FAERS Safety Report 11169651 (Version 2)
Quarter: 2015Q2

REPORT INFORMATION
  Report Type: Spontaneous
  Country: PL (occurrence: PL)
  Receive Date: 20150605
  Receipt Date: 20150622
  Transmission Date: 20150821
  Serious: Yes (Life-Threatening, Hospitalization)
  Sender: FDA-Public Use
  Company Number: PL-GE HEALTHCARE MEDICAL DIAGNOSTICS-OMPQ-PR-1505S-0869

PATIENT
  Age: 26 Year
  Sex: Male
  Weight: 86 kg

DRUGS (2)
  1. OMNIPAQUE [Suspect]
     Active Substance: IOHEXOL
     Indication: DIAGNOSTIC PROCEDURE
  2. OMNIPAQUE [Suspect]
     Active Substance: IOHEXOL
     Indication: EPILEPSY
     Route: 042
     Dates: start: 20150515, end: 20150515

REACTIONS (5)
  - Syncope [Unknown]
  - Respiratory rate decreased [Unknown]
  - Cold sweat [Unknown]
  - Pallor [Unknown]
  - Cough [Unknown]

NARRATIVE: CASE EVENT DATE: 20150515
